FAERS Safety Report 10094310 (Version 1)
Quarter: 2014Q2

REPORT INFORMATION
  Report Type: Report from Study
  Country: GB (occurrence: GB)
  Receive Date: 20140422
  Receipt Date: 20140422
  Transmission Date: 20141212
  Serious: Yes (Hospitalization)
  Sender: FDA-Public Use
  Company Number: GB-CELGENEUS-167-21880-14041594

PATIENT
  Age: 68 Year
  Sex: Female

DRUGS (4)
  1. REVLIMID [Suspect]
     Indication: PLASMA CELL MYELOMA
     Dosage: 25 MILLIGRAM
     Route: 048
     Dates: start: 20140219
  2. CARFILZOMIB [Suspect]
     Indication: PLASMA CELL MYELOMA
     Route: 041
     Dates: start: 20140219
  3. CYCLOPHOSPHAMIDE [Suspect]
     Indication: PLASMA CELL MYELOMA
     Route: 048
     Dates: start: 20140219
  4. DEXAMETHASONE [Suspect]
     Indication: PLASMA CELL MYELOMA
     Route: 048
     Dates: start: 20140219

REACTIONS (1)
  - Oxygen saturation decreased [Recovering/Resolving]
